FAERS Safety Report 11115185 (Version 1)
Quarter: 2015Q2

REPORT INFORMATION
  Report Type: Spontaneous
  Country: US (occurrence: None)
  Receive Date: 20150507
  Receipt Date: 20150507
  Transmission Date: 20150821
  Serious: Yes (Hospitalization, Other)
  Sender: FDA-Public Use
  Company Number: 2014AP005953

PATIENT
  Age: 54 Year
  Sex: Female

DRUGS (3)
  1. CLINDAMYCIN [Suspect]
     Active Substance: CLINDAMYCIN\CLINDAMYCIN PHOSPHATE
     Indication: CELLULITIS
  2. LAMOTRIGINE (LAMOTRIGINE) TABLET [Suspect]
     Active Substance: LAMOTRIGINE
     Indication: SEIZURE
  3. LAMOTRIGINE (LAMOTRIGINE) TABLET [Suspect]
     Active Substance: LAMOTRIGINE
     Indication: NEUROFIBROMATOSIS

REACTIONS (1)
  - Drug reaction with eosinophilia and systemic symptoms [None]
